FAERS Safety Report 15367062 (Version 1)
Quarter: 2018Q3

REPORT INFORMATION
  Report Type: Spontaneous
  Country: US (occurrence: US)
  Receive Date: 20180903
  Receipt Date: 20180903
  Transmission Date: 20181010
  Serious: No
  Sender: FDA-Public Use
  Company Number: None

PATIENT
  Age: 1 Year
  Sex: Female
  Weight: 11.25 kg

DRUGS (2)
  1. INFANT TYNELON [Concomitant]
  2. NYSTATIN ORAL SUSP 100000UNIT/ML [Suspect]
     Active Substance: NYSTATIN
     Indication: CANDIDA INFECTION
     Dosage: ?          QUANTITY:0.5 ML MILLILITRE(S);?
     Route: 048
     Dates: start: 20180831, end: 20180903

REACTIONS (2)
  - Rash [None]
  - Rash generalised [None]

NARRATIVE: CASE EVENT DATE: 20180901
